FAERS Safety Report 6015901-0 (Version None)
Quarter: 2008Q4

REPORT INFORMATION
  Report Type: 
  Country: None (occurrence: None)
  Receive Date: 20081222
  Receipt Date: 20081212
  Transmission Date: 20090506
  Serious: Yes (Hospitalization)
  Sender: FDA-Public Use
  Company Number: B0550205A

PATIENT
  Age: 70 Year
  Sex: Female

DRUGS (5)
  1. ARIXTRA [Suspect]
     Indication: PROPHYLAXIS
     Route: 058
     Dates: start: 20081106, end: 20081120
  2. TARGOCID [Suspect]
     Indication: DRUG USE FOR UNKNOWN INDICATION
     Route: 042
     Dates: start: 20081110, end: 20081121
  3. CEFTRIAXONE [Suspect]
     Indication: DRUG USE FOR UNKNOWN INDICATION
     Route: 042
     Dates: start: 20081110, end: 20081121
  4. FUMAFER [Suspect]
     Indication: DRUG USE FOR UNKNOWN INDICATION
     Route: 048
     Dates: start: 20081110, end: 20081121
  5. RIFADIN [Suspect]
     Indication: DRUG USE FOR UNKNOWN INDICATION
     Route: 042
     Dates: start: 20081115, end: 20081121

REACTIONS (9)
  - C-REACTIVE PROTEIN INCREASED [None]
  - CYTOMEGALOVIRUS TEST POSITIVE [None]
  - HAEMOGLOBIN DECREASED [None]
  - NEUTROPHIL COUNT INCREASED [None]
  - PLATELET COUNT INCREASED [None]
  - RASH MACULO-PAPULAR [None]
  - SKIN DISORDER [None]
  - SKIN EXFOLIATION [None]
  - WHITE BLOOD CELL COUNT INCREASED [None]
